FAERS Safety Report 12224054 (Version 1)
Quarter: 2016Q1

REPORT INFORMATION
  Report Type: Spontaneous
  Country: IN (occurrence: IN)
  Receive Date: 20160330
  Receipt Date: 20160330
  Transmission Date: 20160526
  Serious: Yes (Other)
  Sender: FDA-Public Use
  Company Number: IN-BAUSCH-BL-2016-007064

PATIENT
  Age: 42 Year
  Sex: Female

DRUGS (2)
  1. ALL-TRANS-RETINOIC ACID [Suspect]
     Active Substance: TRETINOIN
     Indication: ACUTE PROMYELOCYTIC LEUKAEMIA
     Dosage: TWO DIVIDED DOSES
     Route: 048
  2. ARSENIC TRIOXIDE [Concomitant]
     Active Substance: ARSENIC TRIOXIDE
     Indication: ACUTE PROMYELOCYTIC LEUKAEMIA
     Route: 042

REACTIONS (2)
  - Left ventricular failure [Recovered/Resolved]
  - Acute coronary syndrome [Recovered/Resolved]
